FAERS Safety Report 8346141-8 (Version None)
Quarter: 2012Q2

REPORT INFORMATION
  Report Type: 
  Country: None (occurrence: None)
  Receive Date: 20120509
  Receipt Date: 20120503
  Transmission Date: 20120825
  Serious: Yes (Disabling)
  Sender: FDA-Public Use
  Company Number: DE-SANOFI-AVENTIS-2012SA018572

PATIENT
  Age: 76 Year
  Sex: Female
  Weight: 80 kg

DRUGS (1)
  1. GLIMEPIRID WINTHROP [Suspect]
     Route: 048

REACTIONS (5)
  - RESPIRATORY DISORDER [None]
  - VISUAL IMPAIRMENT [None]
  - QUALITY OF LIFE DECREASED [None]
  - HYPERSENSITIVITY [None]
  - RASH [None]
